FAERS Safety Report 18266897 (Version 1)
Quarter: 2020Q3

REPORT INFORMATION
  Report Type: Spontaneous
  Country: GB (occurrence: GB)
  Receive Date: 20200915
  Receipt Date: 20200915
  Transmission Date: 20201103
  Serious: Yes (Death)
  Sender: FDA-Public Use
  Company Number: GB-ACCORD-200701

PATIENT
  Age: 45 Year
  Sex: Male
  Weight: 88.9 kg

DRUGS (10)
  1. BISOPROLOL [Concomitant]
     Active Substance: BISOPROLOL
  2. VALPROIC ACID. [Concomitant]
     Active Substance: VALPROIC ACID
  3. DESMOPRESSIN [Concomitant]
     Active Substance: DESMOPRESSIN
  4. PROCHLORPERAZINE. [Concomitant]
     Active Substance: PROCHLORPERAZINE
  5. CLOZAPINE. [Suspect]
     Active Substance: CLOZAPINE
     Indication: SCHIZOPHRENIA
     Dosage: 150MG IN THE MORNING AND 400MG AT NIGHT
     Route: 048
     Dates: start: 2008
  6. DIAZEPAM. [Concomitant]
     Active Substance: DIAZEPAM
  7. LACTULOSE. [Concomitant]
     Active Substance: LACTULOSE
  8. LAMOTRIGINE. [Concomitant]
     Active Substance: LAMOTRIGINE
  9. PRAVASTATIN. [Concomitant]
     Active Substance: PRAVASTATIN
  10. RAMIPRIL. [Concomitant]
     Active Substance: RAMIPRIL

REACTIONS (1)
  - Sudden cardiac death [Fatal]

NARRATIVE: CASE EVENT DATE: 20190306
